FAERS Safety Report 12725553 (Version 1)
Quarter: 2016Q3

REPORT INFORMATION
  Report Type: Spontaneous
  Country: US (occurrence: US)
  Receive Date: 20160908
  Receipt Date: 20160908
  Transmission Date: 20161109
  Serious: No
  Sender: FDA-Public Use
  Company Number: US-WATSON-2016-11045

PATIENT

DRUGS (1)
  1. BUPROPION HYDROCHLORIDE (WATSON LABORATORIES) [Suspect]
     Active Substance: BUPROPION HYDROCHLORIDE
     Indication: PRODUCT USED FOR UNKNOWN INDICATION
     Dosage: UNKNOWN
     Route: 065
     Dates: start: 20160501, end: 20160508

REACTIONS (3)
  - Feeling abnormal [Recovered/Resolved]
  - Therapeutic response changed [Recovered/Resolved]
  - Drug ineffective [Recovered/Resolved]
